FAERS Safety Report 6831566-X (Version None)
Quarter: 2010Q3

REPORT INFORMATION
  Report Type: 
  Country: None (occurrence: None)
  Receive Date: 20100712
  Receipt Date: 20100629
  Transmission Date: 20110219
  Serious: Yes (Other)
  Sender: FDA-Public Use
  Company Number: PHHY2010DE43570

PATIENT
  Age: 63 Year
  Sex: Male

DRUGS (2)
  1. DICLOFENAC SODIUM [Suspect]
     Indication: ARTHRALGIA
     Dosage: 50 MG
     Route: 048
     Dates: start: 20100520
  2. TERAZOSIN HCL [Concomitant]
     Indication: BENIGN PROSTATIC HYPERPLASIA
     Dosage: 0.25 MG
     Route: 048

REACTIONS (4)
  - CIRCULATORY COLLAPSE [None]
  - FLUSHING [None]
  - PARAESTHESIA [None]
  - SWELLING [None]
